FAERS Safety Report 20928266 (Version 1)
Quarter: 2022Q2

REPORT INFORMATION
  Report Type: Spontaneous
  Country: US (occurrence: US)
  Receive Date: 20220607
  Receipt Date: 20220607
  Transmission Date: 20220721
  Serious: No
  Sender: FDA-Public Use
  Company Number: US-PERRIGO-22US001306

PATIENT
  Age: 49 Year
  Sex: Male
  Weight: 97.959 kg

DRUGS (5)
  1. MINOXIDIL [Suspect]
     Active Substance: MINOXIDIL
     Indication: Alopecia
     Dosage: SMALL AMOUNT
     Route: 061
     Dates: start: 202107, end: 202112
  2. MINOXIDIL [Suspect]
     Active Substance: MINOXIDIL
     Dosage: QUARTER SIZED AMOUNT, ONCE EVERY 3 DAYS
     Route: 061
     Dates: start: 20220115, end: 20220122
  3. FINASTERIDE [Concomitant]
     Active Substance: FINASTERIDE
     Indication: Alopecia
     Dosage: UNKNOWN, UNKNOWN
     Route: 065
     Dates: start: 202107
  4. LISINOPRIL [Concomitant]
     Active Substance: LISINOPRIL
     Indication: Hypertension
     Dosage: UNKNOWN, UNKNOWN
     Route: 065
     Dates: start: 1992
  5. OMEPRAZOLE [Concomitant]
     Active Substance: OMEPRAZOLE
     Indication: Dyspepsia
     Dosage: UNKNOWN, UNKNOWN
     Route: 065
     Dates: start: 2017

REACTIONS (8)
  - Application site rash [Not Recovered/Not Resolved]
  - Application site dryness [Not Recovered/Not Resolved]
  - Dandruff [Not Recovered/Not Resolved]
  - Application site pain [Not Recovered/Not Resolved]
  - Application site erythema [Not Recovered/Not Resolved]
  - Incorrect dose administered [Recovered/Resolved]
  - Wrong technique in product usage process [Recovered/Resolved]
  - Inappropriate schedule of product administration [Recovered/Resolved]

NARRATIVE: CASE EVENT DATE: 20210701
